FAERS Safety Report 17235297 (Version 2)
Quarter: 2020Q1

REPORT INFORMATION
  Report Type: Report from Study
  Country: None (occurrence: CO)
  Receive Date: 20200106
  Receipt Date: 20200110
  Transmission Date: 20200409
  Serious: Yes (Death, Hospitalization, Other)
  Sender: FDA-Public Use
  Company Number: CO-ABBVIE-20K-036-3218751-00

PATIENT
  Age: 79 Year
  Sex: Male
  Weight: 48 kg

DRUGS (1)
  1. IMBRUVICA [Suspect]
     Active Substance: IBRUTINIB
     Indication: MARGINAL ZONE LYMPHOMA
     Route: 048
     Dates: start: 20191126

REACTIONS (8)
  - Cardio-respiratory arrest [Fatal]
  - Abdominal pain [Fatal]
  - Product use in unapproved indication [Unknown]
  - Off label use [Unknown]
  - Anaemia [Recovering/Resolving]
  - Fluid retention [Recovering/Resolving]
  - Kidney infection [Recovering/Resolving]
  - Thrombosis [Recovering/Resolving]

NARRATIVE: CASE EVENT DATE: 20191126
